FAERS Safety Report 10223305 (Version 1)
Quarter: 2014Q2

REPORT INFORMATION
  Report Type: Spontaneous
  Country: AU (occurrence: AU)
  Receive Date: 20140609
  Receipt Date: 20140609
  Transmission Date: 20141212
  Serious: Yes (Other)
  Sender: FDA-Public Use
  Company Number: AU-ROCHE-1413933

PATIENT
  Sex: Male
  Weight: 102 kg

DRUGS (5)
  1. PEG-INTERFERON ALFA 2A [Suspect]
     Indication: HEPATITIS C
     Route: 058
     Dates: start: 20140416
  2. RIBAVIRIN [Suspect]
     Indication: HEPATITIS C
     Route: 065
     Dates: start: 20140416, end: 20140528
  3. BOCEPREVIR [Concomitant]
     Indication: HEPATITIS C
     Route: 048
     Dates: start: 20140514
  4. KARVEZIDE [Concomitant]
     Indication: HYPERTENSION
     Dosage: 300/25 MG
     Route: 048
     Dates: start: 2009
  5. CHLORSIG EYE DROPS [Concomitant]
     Dosage: PRN
     Route: 065
     Dates: start: 2014

REACTIONS (2)
  - Serum ferritin increased [Not Recovered/Not Resolved]
  - Anaemia [Not Recovered/Not Resolved]
